FAERS Safety Report 7380730-2 (Version None)
Quarter: 2011Q1

REPORT INFORMATION
  Report Type: 
  Country: None (occurrence: None)
  Receive Date: 20110329
  Receipt Date: 20110318
  Transmission Date: 20110831
  Serious: Yes (Hospitalization)
  Sender: FDA-Public Use
  Company Number: A0705202A

PATIENT
  Age: 42 Year
  Sex: Male
  Weight: 90.9 kg

DRUGS (6)
  1. AVANDAMET [Suspect]
     Indication: DIABETES MELLITUS
     Route: 048
     Dates: start: 20031017, end: 20050418
  2. AVANDIA [Suspect]
     Dosage: 4MG PER DAY
     Route: 048
     Dates: start: 20030906, end: 20070101
  3. ALTACE [Concomitant]
  4. CELEBREX [Concomitant]
  5. GLIPIZIDE [Concomitant]
  6. LIPITOR [Concomitant]

REACTIONS (3)
  - MYOCARDIAL INFARCTION [None]
  - ACUTE CORONARY SYNDROME [None]
  - CARDIAC FAILURE CONGESTIVE [None]
